FAERS Safety Report 4427552-X (Version None)
Quarter: 2004Q3

REPORT INFORMATION
  Report Type: 
  Country: None (occurrence: None)
  Receive Date: 20040817
  Receipt Date: 20040803
  Transmission Date: 20050211
  Serious: Yes (Other)
  Sender: FDA-Public Use
  Company Number: PHBS2004JP10362

PATIENT
  Age: 57 Year
  Sex: Male

DRUGS (5)
  1. LOCHOL [Suspect]
     Indication: HYPERCHOLESTEROLAEMIA
     Dosage: 30 MG/DAY
     Route: 048
     Dates: start: 20031121, end: 20040604
  2. BLOPRESS [Suspect]
     Indication: HYPERCHOLESTEROLAEMIA
     Dosage: 8 MG/DAY
     Route: 048
     Dates: start: 20010511, end: 20040604
  3. MAINTATE [Concomitant]
     Dosage: 5 MG/DAY
     Route: 048
  4. FLUITRAN [Concomitant]
     Dosage: 2 MG/DAY
     Route: 048
  5. BAYLOTENSIN [Suspect]
     Indication: HYPERCHOLESTEROLAEMIA
     Dosage: 10 MG/DAY
     Route: 048
     Dates: start: 20010622, end: 20040604

REACTIONS (3)
  - BLOOD CREATINE PHOSPHOKINASE INCREASED [None]
  - MYOSITIS [None]
  - OEDEMA PERIPHERAL [None]
